FAERS Safety Report 10924577 (Version 2)
Quarter: 2015Q2

REPORT INFORMATION
  Report Type: Spontaneous
  Country: US (occurrence: US)
  Receive Date: 20150318
  Receipt Date: 20150524
  Transmission Date: 20150821
  Serious: No
  Sender: FDA-Public Use
  Company Number: US-JNJFOC-20121101307

PATIENT
  Sex: Male

DRUGS (1)
  1. NIZORAL [Suspect]
     Active Substance: KETOCONAZOLE
     Indication: DRY SKIN
     Dosage: 2 %
     Route: 061

REACTIONS (3)
  - Drug ineffective [Unknown]
  - Product odour abnormal [Unknown]
  - Suspected counterfeit product [Unknown]
